FAERS Safety Report 9471494 (Version 1)
Quarter: 2013Q3

REPORT INFORMATION
  Report Type: Spontaneous
  Country: US (occurrence: US)
  Receive Date: 20130822
  Receipt Date: 20130822
  Transmission Date: 20140515
  Serious: No
  Sender: FDA-Public Use
  Company Number: US-PFIZER INC-2013242468

PATIENT
  Age: 60 Year
  Sex: Male
  Weight: 111 kg

DRUGS (5)
  1. LIPITOR [Suspect]
     Indication: BLOOD CHOLESTEROL INCREASED
     Dosage: 80 MG, 1X/DAY
     Route: 048
     Dates: start: 201303
  2. PREDNISONE [Suspect]
     Indication: RASH
     Dosage: UNK,3X/DAY
     Route: 048
     Dates: start: 2013, end: 2013
  3. PREDNISONE [Suspect]
     Dosage: UNK, 2X/DAY
     Route: 048
     Dates: start: 2013, end: 2013
  4. PREDNISONE [Suspect]
     Dosage: UNK, 1X/DAY
     Route: 048
     Dates: start: 2013, end: 2013
  5. DIOVAN HCT [Concomitant]
     Indication: HYPERTENSION
     Dosage: UNK, 1X/DAY

REACTIONS (1)
  - Rash [Not Recovered/Not Resolved]
